FAERS Safety Report 6704748-5 (Version None)
Quarter: 2010Q2

REPORT INFORMATION
  Report Type: 
  Country: None (occurrence: None)
  Receive Date: 20100430
  Receipt Date: 20090528
  Transmission Date: 20101027
  Serious: No
  Sender: FDA-Public Use
  Company Number: US-BAUSCH-2009BL002632

PATIENT
  Age: 83 Year
  Sex: Male

DRUGS (4)
  1. ALREX [Suspect]
     Indication: DRY EYE
     Route: 047
     Dates: start: 20081201, end: 20081201
  2. ALREX [Suspect]
     Indication: OFF LABEL USE
     Route: 047
     Dates: start: 20081201, end: 20081201
  3. AMLODIPINE [Concomitant]
  4. VISINE EYE DROPS [Concomitant]

REACTIONS (1)
  - EPISTAXIS [None]
